FAERS Safety Report 13134206 (Version 1)
Quarter: 2017Q1

REPORT INFORMATION
  Report Type: Spontaneous
  Country: US (occurrence: US)
  Receive Date: 20170120
  Receipt Date: 20170120
  Transmission Date: 20170428
  Serious: No
  Sender: FDA-Public Use
  Company Number: US-PFIZER INC-2017023626

PATIENT
  Age: 50 Year
  Sex: Female
  Weight: 56 kg

DRUGS (6)
  1. SUTENT [Suspect]
     Active Substance: SUNITINIB MALATE
     Indication: SARCOMA
     Dosage: 50 MG, CYCLIC (1X/DAY FOR 14 DAYS THEN OFF 7 DAYS)
     Route: 048
     Dates: start: 2016
  2. AMITRIPTYLINE [Concomitant]
     Active Substance: AMITRIPTYLINE
     Indication: BACK PAIN
     Dosage: 200 MG, ONCE A DAY
     Route: 048
  3. TRAMADOL. [Concomitant]
     Active Substance: TRAMADOL
     Indication: PAIN
     Dosage: 50 MG, AS NEEDED
     Route: 048
     Dates: end: 2016
  4. SUTENT [Suspect]
     Active Substance: SUNITINIB MALATE
     Dosage: 37.5 MG, CYCLIC (ONCE A DAY AT 3 PM)
     Route: 048
     Dates: start: 2016
  5. CYMBALTA [Concomitant]
     Active Substance: DULOXETINE HYDROCHLORIDE
     Indication: NEUROPATHY PERIPHERAL
  6. CYMBALTA [Concomitant]
     Active Substance: DULOXETINE HYDROCHLORIDE
     Indication: NEURALGIA
     Dosage: 60 MG, ONCE A DAY
     Route: 048

REACTIONS (12)
  - Nausea [Recovering/Resolving]
  - Weight decreased [Unknown]
  - Feeling abnormal [Recovering/Resolving]
  - Asthenia [Recovering/Resolving]
  - Visual impairment [Not Recovered/Not Resolved]
  - Stomatitis [Recovered/Resolved]
  - Dyspepsia [Recovering/Resolving]
  - Hypertension [Not Recovered/Not Resolved]
  - Lethargy [Recovering/Resolving]
  - Hair colour changes [Not Recovered/Not Resolved]
  - Vomiting [Not Recovered/Not Resolved]
  - Malaise [Unknown]

NARRATIVE: CASE EVENT DATE: 2016
